FAERS Safety Report 24751535 (Version 1)
Quarter: 2024Q4

REPORT INFORMATION
  Report Type: Spontaneous
  Country: US (occurrence: US)
  Receive Date: 20241219
  Receipt Date: 20241219
  Transmission Date: 20250115
  Serious: Yes (Other)
  Sender: PACIRA
  Company Number: US-ORG100016242-2024000600

PATIENT
  Sex: Female

DRUGS (2)
  1. EXPAREL [Suspect]
     Active Substance: BUPIVACAINE
     Indication: Rotator cuff repair
     Dosage: NOT PROVIDED
     Route: 065
     Dates: start: 20240119, end: 20240119
  2. UNSPECIFIED INGREDIENT [Suspect]
     Active Substance: UNSPECIFIED INGREDIENT
     Indication: Rotator cuff repair
     Dosage: NOT PROVIDED
     Route: 065
     Dates: start: 20240119, end: 20240119

REACTIONS (7)
  - Diaphragmatic paralysis [Not Recovered/Not Resolved]
  - Wheezing [Not Recovered/Not Resolved]
  - Hypersensitivity [Unknown]
  - Insomnia [Unknown]
  - Dyspnoea [Not Recovered/Not Resolved]
  - Atelectasis [Unknown]
  - Anxiety [Unknown]

NARRATIVE: CASE EVENT DATE: 20240101
